FAERS Safety Report 13872951 (Version 4)
Quarter: 2017Q4

REPORT INFORMATION
  Report Type: Spontaneous
  Country: US (occurrence: US)
  Receive Date: 20170816
  Receipt Date: 20171024
  Transmission Date: 20180320
  Serious: Yes (Hospitalization, Other)
  Sender: FDA-Public Use
  Company Number: US-ROCHE-1979365

PATIENT
  Age: 77 Year
  Sex: Female
  Weight: 63.56 kg

DRUGS (10)
  1. LORATADINE. [Concomitant]
     Active Substance: LORATADINE
     Route: 065
     Dates: start: 20140319
  2. LEVALBUTEROL. [Concomitant]
     Active Substance: LEVALBUTEROL
     Dosage: 1.25 MG/3 ML??1 VIAL EVERY 4 TO 6 HOURS AS NEEDED
     Route: 065
     Dates: start: 20151214
  3. MONTELUKAST [Concomitant]
     Active Substance: MONTELUKAST SODIUM
     Route: 048
     Dates: start: 20170927
  4. PROAIR HFA [Concomitant]
     Active Substance: ALBUTEROL SULFATE
     Dosage: 2 PUFFS
     Route: 065
     Dates: start: 20160826
  5. PREDNISONE. [Concomitant]
     Active Substance: PREDNISONE
     Indication: ASTHMA
     Route: 065
     Dates: start: 20170710
  6. VITAMIN D3 [Concomitant]
     Active Substance: CHOLECALCIFEROL
     Dosage: AS DIRECTED.
     Route: 065
  7. XOLAIR [Suspect]
     Active Substance: OMALIZUMAB
     Indication: ASTHMA
     Route: 058
     Dates: start: 20160328, end: 20170809
  8. EPIPEN [Concomitant]
     Active Substance: EPINEPHRINE
     Dosage: 0.3 MG/0.3 ML??INJECT INTO LATERAL THIGH FOR SEVERE ALLERGIC REACTION CALL 911 AFTER USING THE MEDIC
     Route: 065
     Dates: start: 20160111
  9. SYMBICORT [Concomitant]
     Active Substance: BUDESONIDE\FORMOTEROL FUMARATE DIHYDRATE
     Indication: ASTHMA
     Dosage: 2 PUFFS
     Route: 065
     Dates: start: 20140416
  10. OMEPRAZOLE. [Concomitant]
     Active Substance: OMEPRAZOLE
     Indication: GASTROOESOPHAGEAL REFLUX DISEASE
     Dosage: 1 TABLET BY MOUTH BEFORE BREAKFAST AND DINNER AS NEEDED
     Route: 048
     Dates: start: 20150901

REACTIONS (2)
  - Seizure [Recovered/Resolved]
  - Electroencephalogram abnormal [Unknown]

NARRATIVE: CASE EVENT DATE: 201707
